FAERS Safety Report 20331500 (Version 2)
Quarter: 2022Q1

REPORT INFORMATION
  Report Type: Report from Study
  Country: JP (occurrence: JP)
  Receive Date: 20220113
  Receipt Date: 20220131
  Transmission Date: 20220423
  Serious: Yes (Hospitalization)
  Sender: FDA-Public Use
  Company Number: JP-NOVARTISPH-NVSC2022JP006084

PATIENT
  Age: 74 Year
  Sex: Female
  Weight: 39 kg

DRUGS (6)
  1. ELTROMBOPAG OLAMINE [Suspect]
     Active Substance: ELTROMBOPAG OLAMINE
     Indication: Myelodysplastic syndrome
     Dosage: UNK
     Route: 048
     Dates: start: 20211102
  2. ELTROMBOPAG OLAMINE [Suspect]
     Active Substance: ELTROMBOPAG OLAMINE
     Indication: Blood product transfusion dependent
  3. BROMFENAC SODIUM [Concomitant]
     Active Substance: BROMFENAC SODIUM
     Indication: Cataract operation
     Dosage: UNK
     Route: 065
     Dates: start: 201901
  4. PYRIDOXAL [Concomitant]
     Active Substance: PYRIDOXAL
     Indication: Vitamin B6 deficiency
     Dosage: UNK
     Route: 065
     Dates: start: 20210930
  5. MENATETRENONA [Concomitant]
     Indication: Vitamin K deficiency
     Dosage: UNK
     Route: 065
     Dates: start: 20210930
  6. GLYCOSAMINOGLYCANS [Concomitant]
     Active Substance: GLYCOSAMINOGLYCANS
     Indication: Eczema
     Dosage: SOFT
     Route: 065
     Dates: start: 20211026

REACTIONS (1)
  - Febrile neutropenia [Recovered/Resolved]

NARRATIVE: CASE EVENT DATE: 20220108
